FAERS Safety Report 9058580 (Version 5)
Quarter: 2013Q2

REPORT INFORMATION
  Report Type: Report from Study
  Country: DE (occurrence: DE)
  Receive Date: 20130211
  Receipt Date: 20130625
  Transmission Date: 20140414
  Serious: Yes (Hospitalization)
  Sender: FDA-Public Use
  Company Number: DE-MILLENNIUM PHARMACEUTICALS, INC.-2013-00839

PATIENT
  Sex: 0

DRUGS (8)
  1. VELCADE [Suspect]
     Indication: PLASMA CELL MYELOMA
     Dosage: UNK
     Route: 065
     Dates: start: 20120903, end: 20130104
  2. MELPHALAN [Concomitant]
     Indication: PLASMA CELL MYELOMA
     Dosage: UNK
     Dates: start: 20120903, end: 20130104
  3. PREDNISOLONE [Concomitant]
     Indication: PLASMA CELL MYELOMA
     Dosage: UNK
     Dates: start: 20120903, end: 20130104
  4. DEXAMETHASONE [Concomitant]
     Dosage: UNK
     Dates: start: 20120903
  5. PAMIDRONATE [Concomitant]
     Dosage: UNK
     Dates: start: 20120913
  6. AMOXICLAV                          /01000301/ [Concomitant]
     Dosage: UNK
     Dates: start: 20121217, end: 20121224
  7. SOBELIN                            /00166002/ [Concomitant]
     Dosage: UNK
     Dates: start: 20121217, end: 20121224
  8. FLUCONAZOL [Concomitant]
     Dosage: UNK
     Dates: start: 20120903

REACTIONS (1)
  - Intestinal perforation [Recovered/Resolved]
